FAERS Safety Report 24135097 (Version 1)
Quarter: 2024Q3

REPORT INFORMATION
  Report Type: Spontaneous
  Country: CN (occurrence: CN)
  Receive Date: 20240725
  Receipt Date: 20240725
  Transmission Date: 20241017
  Serious: Yes (Other)
  Sender: ROCHE
  Company Number: CN-ROCHE-10000026613

PATIENT
  Age: 67 Year
  Sex: Female

DRUGS (8)
  1. ERLOTINIB [Suspect]
     Active Substance: ERLOTINIB
     Indication: Lung adenocarcinoma
     Route: 065
  2. BEVACIZUMAB [Suspect]
     Active Substance: BEVACIZUMAB
     Indication: Lung adenocarcinoma
     Route: 065
     Dates: start: 20220106, end: 20240414
  3. CARBOPLATIN [Suspect]
     Active Substance: CARBOPLATIN
     Indication: Lung adenocarcinoma
     Route: 065
     Dates: start: 20220106, end: 20220414
  4. PEMETREXED [Suspect]
     Active Substance: PEMETREXED
     Indication: Lung adenocarcinoma
     Route: 065
     Dates: start: 20220106, end: 20220414
  5. GEFITINIB [Suspect]
     Active Substance: GEFITINIB
     Indication: Lung adenocarcinoma
     Route: 065
     Dates: start: 20200925
  6. DOCETAXEL [Concomitant]
     Active Substance: DOCETAXEL\DOCETAXEL ANHYDROUS
     Dates: start: 20220513
  7. SINTILIMAB [Concomitant]
     Active Substance: SINTILIMAB
     Dates: start: 20220513
  8. CATEQUENTINIB [Concomitant]
     Active Substance: CATEQUENTINIB
     Dates: start: 20220605

REACTIONS (2)
  - Metastases to central nervous system [Unknown]
  - Drug resistance [Unknown]
